FAERS Safety Report 5723336-0 (Version None)
Quarter: 2008Q2

REPORT INFORMATION
  Report Type: 
  Country: None (occurrence: None)
  Receive Date: 20080425
  Receipt Date: 20080409
  Transmission Date: 20081010
  Serious: Yes (Hospitalization)
  Sender: FDA-Public Use
  Company Number: 2008BI009152

PATIENT
  Age: 37 Year
  Sex: Male

DRUGS (2)
  1. ZEVALIN [Suspect]
     Indication: B-CELL LYMPHOMA
     Dosage: 960 MBQ;1X;IV
     Route: 042
     Dates: start: 20080124, end: 20080124
  2. RITUXIMAB [Concomitant]

REACTIONS (6)
  - ABDOMINAL PAIN [None]
  - DEHYDRATION [None]
  - MALNUTRITION [None]
  - NAUSEA [None]
  - RENAL FAILURE ACUTE [None]
  - VOMITING [None]
